APPROVED DRUG PRODUCT: DESLORATADINE
Active Ingredient: DESLORATADINE
Strength: 5MG
Dosage Form/Route: TABLET;ORAL
Application: A078355 | Product #001 | TE Code: AB
Applicant: AJENAT PHARMACEUTICALS LLC
Approved: Apr 19, 2012 | RLD: No | RS: No | Type: RX